FAERS Safety Report 25235040 (Version 1)
Quarter: 2025Q2

REPORT INFORMATION
  Report Type: Spontaneous
  Country: KR (occurrence: KR)
  Receive Date: 20250424
  Receipt Date: 20250424
  Transmission Date: 20250716
  Serious: Yes (Other)
  Sender: MYLAN
  Company Number: KR-MYLANLABS-2025M1035117

PATIENT
  Sex: Female
  Weight: 47 kg

DRUGS (4)
  1. ZELDOX [Suspect]
     Active Substance: ZIPRASIDONE
     Indication: Pharyngitis
     Dosage: 1 DOSAGE FORM, BID
     Dates: start: 20220330, end: 20220405
  2. ZELDOX [Suspect]
     Active Substance: ZIPRASIDONE
     Dosage: 1 DOSAGE FORM, BID
     Route: 065
     Dates: start: 20220330, end: 20220405
  3. ZELDOX [Suspect]
     Active Substance: ZIPRASIDONE
     Dosage: 1 DOSAGE FORM, BID
     Route: 065
     Dates: start: 20220330, end: 20220405
  4. ZELDOX [Suspect]
     Active Substance: ZIPRASIDONE
     Dosage: 1 DOSAGE FORM, BID
     Dates: start: 20220330, end: 20220405

REACTIONS (2)
  - Eosinophil count increased [Recovered/Resolved]
  - Off label use [Unknown]

NARRATIVE: CASE EVENT DATE: 20220330
